FAERS Safety Report 24569173 (Version 2)
Quarter: 2024Q4

REPORT INFORMATION
  Report Type: Spontaneous
  Country: US (occurrence: US)
  Receive Date: 20241031
  Receipt Date: 20241111
  Transmission Date: 20250114
  Serious: Yes (Life-Threatening, Hospitalization, Other)
  Sender: PFIZER
  Company Number: US-PFIZER INC-PV202400140270

PATIENT
  Age: 26 Month
  Sex: Female

DRUGS (3)
  1. METHYLPREDNISOLONE SODIUM SUCCINATE [Suspect]
     Active Substance: METHYLPREDNISOLONE SODIUM SUCCINATE
     Indication: Interstitial lung disease
     Dosage: UNK, EVERY 2 WEEKS FOR OVER 6 MONTHS
     Route: 041
  2. METHYLPREDNISOLONE SODIUM SUCCINATE [Suspect]
     Active Substance: METHYLPREDNISOLONE SODIUM SUCCINATE
     Indication: Still^s disease
     Dosage: UNK, 12-STEP DESENSITIZATION
  3. ALBUTEROL [Concomitant]
     Active Substance: ALBUTEROL
     Indication: Wheezing

REACTIONS (7)
  - Type I hypersensitivity [Unknown]
  - Respiratory distress [Unknown]
  - Hypertension [Unknown]
  - Oral pain [Unknown]
  - Cyanosis [Unknown]
  - Lethargy [Unknown]
  - Anaphylactic reaction [Unknown]
